FAERS Safety Report 9486053 (Version 1)
Quarter: 2013Q3

REPORT INFORMATION
  Report Type: Spontaneous
  Country: US (occurrence: None)
  Receive Date: 20130827
  Receipt Date: 20130827
  Transmission Date: 20140515
  Serious: Yes (Death)
  Sender: FDA-Public Use
  Company Number: None

PATIENT
  Age: 70 Year
  Sex: Male
  Weight: 122.47 kg

DRUGS (2)
  1. WARFARIN [Suspect]
     Indication: ATRIAL FIBRILLATION
     Dosage: ONCE DAILY  TAKEN BY MOUTH?DAILY FOR SEVERAL YEARS
     Route: 048
  2. PLAVIX [Suspect]
     Dosage: 1 PILL  ONCE DAILY  TAKEN BY MOUTH?ONCE DAILY FOR THREE YEARS
     Route: 048

REACTIONS (4)
  - Subdural haematoma [None]
  - Brain herniation [None]
  - Fall [None]
  - Head injury [None]
